FAERS Safety Report 8150128 (Version 2)
Quarter: 2013Q1

REPORT INFORMATION
  Report Type: Spontaneous
  Country: US (occurrence: US)
  Receive Date: 20110922
  Receipt Date: 20130222
  Transmission Date: 20140127
  Serious: No
  Sender: FDA-Public Use
  Company Number: US-ASTRAZENECA-2011SE13268

PATIENT
  Age: 40 Year
  Sex: Female
  Weight: 153.3 kg

DRUGS (6)
  1. SEROQUEL XR [Suspect]
     Indication: BIPOLAR DISORDER
     Route: 048
     Dates: start: 20110209, end: 20110209
  2. SEROQUEL XR [Suspect]
     Indication: BIPOLAR DISORDER
     Route: 048
  3. SYMBICORT PMDI [Suspect]
     Indication: ASTHMA
     Dosage: 160/4.5 MCG OD
     Route: 055
     Dates: start: 2008
  4. GLYBURIDE [Concomitant]
     Indication: TYPE 2 DIABETES MELLITUS
  5. LISINOPRIL-HCTZ [Concomitant]
     Indication: HYPERTENSION
     Dosage: 20/25 MG DAILY
  6. XANAX [Concomitant]
     Indication: ANXIETY
     Dates: start: 201102

REACTIONS (7)
  - Malaise [Unknown]
  - Hypersomnia [Not Recovered/Not Resolved]
  - Sedation [Recovered/Resolved]
  - Somnolence [Recovered/Resolved]
  - Drug dispensing error [Unknown]
  - Incorrect dose administered [Unknown]
  - Drug dose omission [Unknown]
